FAERS Safety Report 11550162 (Version 1)
Quarter: 2015Q3

REPORT INFORMATION
  Report Type: Spontaneous
  Country: US (occurrence: US)
  Receive Date: 20150924
  Receipt Date: 20150924
  Transmission Date: 20151125
  Serious: No
  Sender: FDA-Public Use
  Company Number: GXBR2015US001864

PATIENT

DRUGS (1)
  1. HYDROXYZINE PAMOATE CAPSULES USP [Suspect]
     Active Substance: HYDROXYZINE PAMOATE
     Indication: PRODUCT USED FOR UNKNOWN INDICATION
     Dosage: 25 MG, QD (TWO TIMES ONLY)
     Route: 048

REACTIONS (2)
  - Lethargy [Unknown]
  - Malaise [Unknown]
